FAERS Safety Report 20167390 (Version 1)
Quarter: 2021Q4

REPORT INFORMATION
  Report Type: Spontaneous
  Country: FR (occurrence: FR)
  Receive Date: 20211209
  Receipt Date: 20211209
  Transmission Date: 20220303
  Serious: Yes (Hospitalization)
  Sender: FDA-Public Use
  Company Number: None

PATIENT
  Age: 72 Year
  Sex: Male
  Weight: 109 kg

DRUGS (3)
  1. ZYDELIG [Suspect]
     Active Substance: IDELALISIB
     Indication: Chronic lymphocytic leukaemia
     Route: 048
     Dates: end: 20211108
  2. ASTRAZENECA COVID-19 VACCINE [Suspect]
     Active Substance: AZD-1222
     Indication: COVID-19 immunisation
     Dosage: D1+D2; 2 TOTAL DOSES
     Route: 030
     Dates: start: 20210409, end: 20210611
  3. MODERNA COVID-19 VACCINE [Suspect]
     Active Substance: ELASOMERAN
     Indication: COVID-19 immunisation
     Dosage: D3
     Route: 030
     Dates: start: 20210715, end: 20210715

REACTIONS (1)
  - Vaccination failure [Not Recovered/Not Resolved]

NARRATIVE: CASE EVENT DATE: 20211108
